FAERS Safety Report 10380499 (Version 1)
Quarter: 2014Q1

REPORT INFORMATION
  Report Type: Spontaneous
  Country: US (occurrence: None)
  Receive Date: 20140306
  Receipt Date: 20140306
  Transmission Date: 20141002
  Serious: Yes (Other)
  Sender: FDA-Public Use
  Company Number: 163-21880-13101164

PATIENT
  Age: 66 Year
  Sex: Male
  Weight: 112.49 kg

DRUGS (14)
  1. REVLIMID (LENALIDOMIDE) (15 MILLIGRAM, CAPSULES) [Suspect]
     Indication: PLASMA CELL MYELOMA
     Route: 048
     Dates: start: 200811
  2. CYMBALTA [Concomitant]
  3. LASIX (FUROSEMIDE) [Concomitant]
  4. NEURONTIN (GABAPENTIN) [Concomitant]
  5. SIMVASTATIN [Concomitant]
  6. OMEPRAZOLE [Concomitant]
  7. DIAZEPAM [Concomitant]
  8. LACTOSE FAST ACTING (TILACTASE) [Concomitant]
  9. MOBIC (MELOXICAM) [Concomitant]
  10. FLOMAX (TAMSULOSIN HYDROCHLORIDE) [Concomitant]
  11. POTASSIUM [Concomitant]
  12. ASPIRIN (ACETYLSALICYLIC ACID) [Concomitant]
  13. LORTAB (VICODIN) [Concomitant]
  14. OXYBUTYNIN [Concomitant]

REACTIONS (1)
  - Tooth disorder [None]
